FAERS Safety Report 4565662-7 (Version None)
Quarter: 2005Q1

REPORT INFORMATION
  Report Type: 
  Country: None (occurrence: None)
  Receive Date: 20050126
  Receipt Date: 20050112
  Transmission Date: 20050727
  Serious: Yes (Hospitalization, Other)
  Sender: FDA-Public Use
  Company Number: USA-2004-0015732

PATIENT
  Age: 68 Year
  Sex: Female

DRUGS (19)
  1. OXYCONTIN [Suspect]
     Indication: PAIN
     Dosage: SEE IMAGE
     Dates: end: 20020601
  2. OXYCONTIN [Suspect]
     Indication: PAIN
     Dosage: SEE IMAGE
     Dates: start: 20011101
  3. OXYCONTIN [Suspect]
     Dosage: 40 MG, BID
     Dates: start: 20020601
  4. OXYCONTIN [Suspect]
     Dosage: 20 MG, BID, ORAL
     Route: 048
  5. NORCO [Concomitant]
  6. PAXIL [Concomitant]
  7. VALIUM [Concomitant]
  8. BEXTRA [Concomitant]
  9. TRAZODONE (TRAZODONE) [Concomitant]
  10. NITRO (GLYCERYL TRINITRATE) [Concomitant]
  11. ATIVAN [Concomitant]
  12. FISH OIL (FISH OIL) [Concomitant]
  13. VIOXX [Concomitant]
  14. MONOPRIL [Concomitant]
  15. LEXAPRO [Concomitant]
  16. CLONAZEPAM [Concomitant]
  17. REMERON [Concomitant]
  18. BEXTRA [Concomitant]
  19. DESYREL [Concomitant]

REACTIONS (26)
  - ANXIETY [None]
  - ASTHENIA [None]
  - BACTERIAL INFECTION [None]
  - CHILLS [None]
  - DEHYDRATION [None]
  - DEPRESSION [None]
  - DISEASE RECURRENCE [None]
  - DISTURBANCE IN ATTENTION [None]
  - DRUG DEPENDENCE [None]
  - DRUG WITHDRAWAL SYNDROME [None]
  - EMOTIONAL DISTRESS [None]
  - INSOMNIA [None]
  - MALAISE [None]
  - MEMORY IMPAIRMENT [None]
  - NAUSEA [None]
  - OBSESSIVE-COMPULSIVE DISORDER [None]
  - PAIN [None]
  - PARANOIA [None]
  - PNEUMONIA [None]
  - PYREXIA [None]
  - SPUTUM CULTURE POSITIVE [None]
  - STREPTOCOCCAL INFECTION [None]
  - SUICIDAL IDEATION [None]
  - VIRAL INFECTION [None]
  - VOMITING [None]
  - WEIGHT DECREASED [None]
